FAERS Safety Report 10485251 (Version 13)
Quarter: 2016Q4

REPORT INFORMATION
  Report Type: Report from Study
  Country: CA (occurrence: CA)
  Receive Date: 20140930
  Receipt Date: 20161110
  Transmission Date: 20170206
  Serious: Yes (Hospitalization)
  Sender: FDA-Public Use
  Company Number: PHHY2014CA092142

PATIENT
  Age: 52 Year
  Sex: Male

DRUGS (7)
  1. LOSEC                                   /CAN/ [Concomitant]
     Indication: PRODUCT USED FOR UNKNOWN INDICATION
     Route: 065
  2. GLEEVEC [Suspect]
     Active Substance: IMATINIB MESYLATE
     Dosage: 400 MG, QD
     Route: 048
  3. GLEEVEC [Suspect]
     Active Substance: IMATINIB MESYLATE
     Dosage: 200 MG, QD
     Route: 048
  4. GLEEVEC [Suspect]
     Active Substance: IMATINIB MESYLATE
     Dosage: 300 MG, QD
     Route: 048
  5. GLEEVEC [Suspect]
     Active Substance: IMATINIB MESYLATE
     Indication: GASTROINTESTINAL STROMAL TUMOUR
     Dosage: 400 MG, QD
     Route: 048
     Dates: start: 20140715, end: 20141006
  6. OXYCONTIN [Concomitant]
     Active Substance: OXYCODONE HYDROCHLORIDE
     Indication: PRODUCT USED FOR UNKNOWN INDICATION
     Dosage: UNK, PRN
     Route: 065
  7. PERCOCET [Concomitant]
     Active Substance: ACETAMINOPHEN\OXYCODONE HYDROCHLORIDE
     Indication: MUSCULOSKELETAL PAIN
     Dosage: PRN
     Route: 065

REACTIONS (27)
  - Venous occlusion [Unknown]
  - Pyrexia [Unknown]
  - Poor quality sleep [Not Recovered/Not Resolved]
  - Feeling abnormal [Unknown]
  - Fatigue [Recovering/Resolving]
  - Haemoglobin decreased [Unknown]
  - Stomatitis [Recovering/Resolving]
  - Hiccups [Unknown]
  - Drug intolerance [Unknown]
  - Hypersensitivity [Unknown]
  - Nausea [Unknown]
  - Urticaria [Recovered/Resolved]
  - Tumour compression [Unknown]
  - Tumour rupture [Unknown]
  - Pain [Recovering/Resolving]
  - Vitamin D decreased [Unknown]
  - Dry mouth [Unknown]
  - Hypotension [Unknown]
  - Prescribed underdose [Unknown]
  - White blood cell count increased [Unknown]
  - Haemoglobin increased [Unknown]
  - Muscular weakness [Unknown]
  - Red blood cell count decreased [Unknown]
  - Volvulus [Unknown]
  - Asthenia [Unknown]
  - Tongue haemorrhage [Recovering/Resolving]
  - Rash generalised [Recovered/Resolved]

NARRATIVE: CASE EVENT DATE: 20141006
